FAERS Safety Report 25519350 (Version 3)
Quarter: 2025Q3

REPORT INFORMATION
  Report Type: Spontaneous
  Country: CN (occurrence: CN)
  Receive Date: 20250704
  Receipt Date: 20250725
  Transmission Date: 20251021
  Serious: Yes (Death)
  Sender: NOVARTIS
  Company Number: CN-002147023-NVSC2025CN106791

PATIENT
  Age: 77 Year
  Sex: Male

DRUGS (2)
  1. MEKINIST [Suspect]
     Active Substance: TRAMETINIB DIMETHYL SULFOXIDE
     Indication: Malignant melanoma stage IV
     Dosage: 2 DOSAGE FORM, QD
     Route: 048
     Dates: start: 20250613
  2. ALBUMIN HUMAN [Concomitant]
     Active Substance: ALBUMIN HUMAN
     Indication: Product used for unknown indication
     Route: 065

REACTIONS (1)
  - Death [Fatal]

NARRATIVE: CASE EVENT DATE: 20250615
